FAERS Safety Report 5904125-0 (Version None)
Quarter: 2008Q3

REPORT INFORMATION
  Report Type: 
  Country: None (occurrence: None)
  Receive Date: 20080919
  Receipt Date: 20080605
  Transmission Date: 20090109
  Serious: Yes (Other)
  Sender: FDA-Public Use
  Company Number: US-WYE-H04380408

PATIENT
  Age: 56 Year
  Sex: Female

DRUGS (2)
  1. PRISTIQ [Suspect]
     Indication: MAJOR DEPRESSION
     Dosage: 50 MG 1X PER I DAY, ORAL
     Route: 048
     Dates: start: 20080529, end: 20080601
  2. ESTRADIOL [Concomitant]

REACTIONS (2)
  - HEADACHE [None]
  - RECTAL HAEMORRHAGE [None]
